FAERS Safety Report 10190428 (Version 2)
Quarter: 2014Q2

REPORT INFORMATION
  Report Type: Spontaneous
  Country: JP (occurrence: JP)
  Receive Date: 20140522
  Receipt Date: 20140530
  Transmission Date: 20141212
  Serious: Yes (Other)
  Sender: FDA-Public Use
  Company Number: JP-BAXTER-2014BAX025546

PATIENT
  Age: 19 Month
  Sex: Male

DRUGS (3)
  1. GAMMAGARD FOR INJECTION 2.5G [Suspect]
     Indication: KAWASAKI^S DISEASE
     Dosage: 2 G/KG ON DAY 5
     Route: 042
  2. ASPIRIN [Concomitant]
     Indication: PRODUCT USED FOR UNKNOWN INDICATION
     Route: 065
  3. DIPYRIDAMOLE [Concomitant]
     Indication: PRODUCT USED FOR UNKNOWN INDICATION
     Route: 065

REACTIONS (2)
  - Neutropenia [Recovered/Resolved]
  - No therapeutic response [Unknown]
